FAERS Safety Report 22378348 (Version 1)
Quarter: 2023Q2

REPORT INFORMATION
  Report Type: Spontaneous
  Country: HK (occurrence: HK)
  Receive Date: 20230529
  Receipt Date: 20230529
  Transmission Date: 20230722
  Serious: Yes (Hospitalization, Other)
  Sender: FDA-Public Use
  Company Number: HK-STERISCIENCE B.V.-2023-ST-001362

PATIENT
  Age: 14 Year
  Sex: Male

DRUGS (18)
  1. MIDAZOLAM [Suspect]
     Active Substance: MIDAZOLAM
     Indication: Dystonia
     Dosage: 0.2 MILLIGRAM/KILOGRAM, QH, INFUSION
     Route: 042
  2. MIDAZOLAM [Suspect]
     Active Substance: MIDAZOLAM
     Indication: Dyskinesia
  3. BACLOFEN [Suspect]
     Active Substance: BACLOFEN
     Indication: Movement disorder
     Dosage: UNK
     Route: 065
  4. TETRABENAZINE [Suspect]
     Active Substance: TETRABENAZINE
     Indication: Movement disorder
     Dosage: UNK
     Route: 065
  5. CARBAMAZEPINE [Suspect]
     Active Substance: CARBAMAZEPINE
     Indication: Epilepsy
     Dosage: UNK
     Route: 065
  6. CLOBAZAM [Suspect]
     Active Substance: CLOBAZAM
     Indication: Epilepsy
     Dosage: UNK
     Route: 065
  7. MORPHINE [Suspect]
     Active Substance: MORPHINE
     Indication: Dystonia
     Dosage: 20 MICROGRAM/KILOGRAM, QH, INFUSION
     Route: 042
  8. MORPHINE [Suspect]
     Active Substance: MORPHINE
     Indication: Dyskinesia
     Dosage: 3 MILLIGRAM, Q6H
     Route: 048
  9. CLONIDINE [Suspect]
     Active Substance: CLONIDINE
     Indication: Dystonia
     Dosage: 0.58 MICROGRAM/KILOGRAM, Q8H
     Route: 048
  10. CLONIDINE [Suspect]
     Active Substance: CLONIDINE
     Indication: Dyskinesia
     Dosage: 0.05 MILLIGRAM, Q6H
     Route: 048
  11. CHLORAL HYDRATE [Suspect]
     Active Substance: CHLORAL HYDRATE
     Indication: Dyskinesia
     Dosage: 23 MG/KG/DOSE EVERY 6H
     Route: 048
  12. CHLORAL HYDRATE [Suspect]
     Active Substance: CHLORAL HYDRATE
     Indication: Dystonia
     Dosage: 500 MILLIGRAM, QD
     Route: 048
  13. DIAZEPAM [Suspect]
     Active Substance: DIAZEPAM
     Indication: Dystonia
     Dosage: UNK
     Route: 048
  14. DIAZEPAM [Suspect]
     Active Substance: DIAZEPAM
     Indication: Dyskinesia
  15. KETAMINE [Suspect]
     Active Substance: KETAMINE
     Indication: Dystonia
     Dosage: 5 MICROGRAM/KILOGRAM, QMINUTE, INTRAVENOUS INFUSION
     Route: 042
  16. KETAMINE [Suspect]
     Active Substance: KETAMINE
     Indication: Dyskinesia
  17. FUROSEMIDE [Concomitant]
     Active Substance: FUROSEMIDE
     Indication: Hypervolaemia
     Dosage: 1.2 MILLIGRAM/KILOGRAM, QH, INFUSION
     Route: 042
  18. FUROSEMIDE [Concomitant]
     Active Substance: FUROSEMIDE
     Indication: Prophylaxis

REACTIONS (9)
  - Hyperphosphataemia [None]
  - Acute kidney injury [None]
  - Rhabdomyolysis [None]
  - Respiratory failure [None]
  - Sedation complication [None]
  - Hypoventilation [None]
  - Metabolic acidosis [None]
  - Hypotension [None]
  - Off label use [Unknown]
